FAERS Safety Report 17351108 (Version 2)
Quarter: 2020Q1

REPORT INFORMATION
  Report Type: Report from Study
  Country: US (occurrence: US)
  Receive Date: 20200130
  Receipt Date: 20200304
  Transmission Date: 20200409
  Serious: Yes (Other)
  Sender: FDA-Public Use
  Company Number: US-BIOGEN-2020BI00832150

PATIENT
  Sex: Female

DRUGS (3)
  1. TECFIDERA [Suspect]
     Active Substance: DIMETHYL FUMARATE
     Indication: MULTIPLE SCLEROSIS
     Dosage: STARTING DOSE
     Route: 048
     Dates: start: 2019, end: 201901
  2. TECFIDERA [Suspect]
     Active Substance: DIMETHYL FUMARATE
     Dosage: MAINTENANCE DOSE
     Route: 065
  3. TECFIDERA [Suspect]
     Active Substance: DIMETHYL FUMARATE
     Dosage: REMAINS ON 120MG TWICE A DAY
     Route: 065

REACTIONS (9)
  - Urine odour abnormal [Unknown]
  - White blood cell count decreased [Not Recovered/Not Resolved]
  - Chromaturia [Unknown]
  - Constipation [Recovered/Resolved]
  - Drug-induced liver injury [Unknown]
  - Fatigue [Unknown]
  - Prescribed underdose [Unknown]
  - Abdominal pain [Recovered/Resolved]
  - Drug intolerance [Unknown]
